FAERS Safety Report 8557932-2 (Version None)
Quarter: 2012Q3

REPORT INFORMATION
  Report Type: 
  Country: None (occurrence: None)
  Receive Date: 20120801
  Receipt Date: 20120726
  Transmission Date: 20120928
  Serious: Yes (Death, Hospitalization)
  Sender: FDA-Public Use
  Company Number: PHHO2012SE011018

PATIENT
  Sex: Male
  Weight: 102.7 kg

DRUGS (2)
  1. ILARIS [Suspect]
     Indication: CARDIOVASCULAR EVENT PROPHYLAXIS
     Dosage: 300 MG, UNK
     Route: 058
     Dates: start: 20120502, end: 20120502
  2. ILARIS [Suspect]
     Dosage: DOUBLE BINDED
     Route: 058
     Dates: start: 20120515, end: 20120515

REACTIONS (1)
  - SEPSIS [None]
